FAERS Safety Report 6297203-0 (Version None)
Quarter: 2009Q3

REPORT INFORMATION
  Report Type: 
  Country: None (occurrence: None)
  Receive Date: 20090805
  Receipt Date: 20070521
  Transmission Date: 20100115
  Serious: Yes (Other)
  Sender: FDA-Public Use
  Company Number: US-ASTRAZENECA-2006UW21836

PATIENT
  Age: 52 Year
  Sex: Male
  Weight: 188.7 kg

DRUGS (8)
  1. SEROQUEL [Suspect]
     Indication: BIPOLAR I DISORDER
     Route: 048
     Dates: start: 20000101
  2. SEROQUEL [Suspect]
     Dosage: 100 - 400 MG, FLUCTUATING, INTERMITTENT
     Route: 048
     Dates: start: 20021015
  3. RISPERDAL [Concomitant]
  4. THORAZINE [Concomitant]
  5. LITHIUM [Concomitant]
     Dosage: 200 - 600 MG, FLUCTUATING
     Route: 048
     Dates: start: 19950413
  6. AVANDIA [Concomitant]
     Route: 048
     Dates: start: 20061008
  7. ZOLOFT [Concomitant]
     Dosage: 50 - 100 MG, FLUCTUATING
     Route: 048
     Dates: start: 20021015
  8. TRAZODONE HCL [Concomitant]
     Dosage: 100 MG 2 TABLET AT BEDTIME
     Route: 048

REACTIONS (4)
  - GLUCOSE TOLERANCE IMPAIRED [None]
  - METABOLIC SYNDROME [None]
  - NEUROPATHY PERIPHERAL [None]
  - TYPE 2 DIABETES MELLITUS [None]
